FAERS Safety Report 8392109-5 (Version None)
Quarter: 2012Q2

REPORT INFORMATION
  Report Type: 
  Country: None (occurrence: None)
  Receive Date: 20120529
  Receipt Date: 20120523
  Transmission Date: 20120825
  Serious: Yes (Death)
  Sender: FDA-Public Use
  Company Number: US-ROCHE-1040708

PATIENT
  Sex: Female

DRUGS (3)
  1. ERBITUX [Concomitant]
     Indication: NON-SMALL CELL LUNG CANCER
  2. TARCEVA [Suspect]
     Indication: LUNG NEOPLASM MALIGNANT
  3. AVASTIN [Suspect]
     Indication: NON-SMALL CELL LUNG CANCER

REACTIONS (1)
  - DISEASE PROGRESSION [None]
